FAERS Safety Report 4687767-2 (Version None)
Quarter: 2005Q2

REPORT INFORMATION
  Report Type: 
  Country: None (occurrence: None)
  Receive Date: 20050610
  Receipt Date: 20041117
  Transmission Date: 20051028
  Serious: Yes (Hospitalization, Other)
  Sender: FDA-Public Use
  Company Number: US-MERCK-0411USA02977

PATIENT
  Age: 85 Year
  Sex: Female

DRUGS (2)
  1. VIOXX [Suspect]
     Indication: ARTHRITIS
     Route: 048
     Dates: start: 19990101, end: 20040930
  2. ZOCOR [Concomitant]
     Route: 048

REACTIONS (18)
  - AORTIC VALVE INCOMPETENCE [None]
  - BLADDER DISORDER [None]
  - BLOOD DISORDER [None]
  - CARDIOVASCULAR DISORDER [None]
  - CEREBROVASCULAR ACCIDENT [None]
  - CHEST DISCOMFORT [None]
  - DILATATION ATRIAL [None]
  - DIPLOPIA [None]
  - DYSPEPSIA [None]
  - HIATUS HERNIA [None]
  - HYPERTENSION [None]
  - MITRAL VALVE INCOMPETENCE [None]
  - NAUSEA [None]
  - PULMONARY HYPERTENSION [None]
  - SKIN CANCER [None]
  - TRICUSPID VALVE INCOMPETENCE [None]
  - VASCULAR CALCIFICATION [None]
  - VENTRICULAR HYPERTROPHY [None]
